FAERS Safety Report 7274016-4 (Version None)
Quarter: 2011Q1

REPORT INFORMATION
  Report Type: 
  Country: None (occurrence: None)
  Receive Date: 20110203
  Receipt Date: 20110126
  Transmission Date: 20110831
  Serious: Yes (Death, Hospitalization)
  Sender: FDA-Public Use
  Company Number: US-GILEAD-2011-0035333

PATIENT
  Sex: Male

DRUGS (16)
  1. FAMOTIDINE [Concomitant]
  2. THIAMINE [Concomitant]
  3. SODIUM CHLORIDE [Concomitant]
  4. SIMVASTATIN [Concomitant]
  5. FLUTICASONE/SALMETEROL [Concomitant]
  6. DOCUSATE SODIUM [Concomitant]
  7. FOLIC ACID [Concomitant]
  8. ACETAMINOPHEN [Concomitant]
  9. LETAIRIS [Suspect]
     Indication: PULMONARY HYPERTENSION
     Route: 048
     Dates: start: 20100316, end: 20100402
  10. DORZOLAMIDE [Concomitant]
  11. CALCIUM CARBONATE/VITAMIN D [Concomitant]
  12. TAMSULOSIN HCL [Concomitant]
  13. BRIMONIDINE [Concomitant]
  14. ATENOLOL [Concomitant]
  15. HEPARIN [Concomitant]
  16. TRAZOPROSTZ [Concomitant]

REACTIONS (2)
  - RESPIRATORY FAILURE [None]
  - CARDIAC ARREST [None]
